FAERS Safety Report 7423489-2 (Version None)
Quarter: 2011Q2

REPORT INFORMATION
  Report Type: 
  Country: None (occurrence: None)
  Receive Date: 20110419
  Receipt Date: 20110310
  Transmission Date: 20111010
  Serious: Yes (Hospitalization, Other)
  Sender: FDA-Public Use
  Company Number: US-BAYER-201015568NA

PATIENT
  Age: 17 Year
  Sex: Female
  Weight: 79.365 kg

DRUGS (3)
  1. YASMIN [Suspect]
     Route: 048
     Dates: start: 20071201, end: 20081215
  2. YAZ [Suspect]
     Indication: MENSTRUATION IRREGULAR
  3. YAZ [Suspect]
     Indication: CONTRACEPTION
     Dosage: UNK
     Route: 048
     Dates: start: 20070701, end: 20081215

REACTIONS (10)
  - CHOLELITHIASIS [None]
  - VOMITING [None]
  - BILE DUCT STONE [None]
  - MUSCULOSKELETAL CHEST PAIN [None]
  - PAIN [None]
  - ANXIETY [None]
  - NAUSEA [None]
  - GASTROOESOPHAGEAL REFLUX DISEASE [None]
  - GALLBLADDER DISORDER [None]
  - CHOLECYSTITIS ACUTE [None]
